FAERS Safety Report 14639524 (Version 1)
Quarter: 2018Q1

REPORT INFORMATION
  Report Type: Spontaneous
  Country: FR (occurrence: FR)
  Receive Date: 20180315
  Receipt Date: 20180315
  Transmission Date: 20180509
  Serious: Yes (Other)
  Sender: FDA-Public Use
  Company Number: FR-MERCK KGAA-2043787

PATIENT
  Age: 58 Year
  Sex: Female

DRUGS (1)
  1. NOVOTHYROX [Suspect]
     Active Substance: LEVOTHYROXINE SODIUM
     Indication: HYPOTHYROIDISM
     Dates: start: 20170601

REACTIONS (20)
  - Nausea [None]
  - Dry skin [None]
  - Abdominal pain upper [None]
  - Loss of personal independence in daily activities [None]
  - Fear [None]
  - Alopecia [None]
  - Fatigue [None]
  - Hyperthyroidism [None]
  - Skin plaque [None]
  - Tinnitus [None]
  - Weight increased [None]
  - Discomfort [None]
  - Malaise [None]
  - Blood thyroid stimulating hormone increased [None]
  - Mood swings [None]
  - Anxiety [None]
  - Hot flush [None]
  - Skin burning sensation [None]
  - Amnesia [None]
  - Stress [None]

NARRATIVE: CASE EVENT DATE: 20171023
